FAERS Safety Report 24533363 (Version 1)
Quarter: 2024Q4

REPORT INFORMATION
  Report Type: Spontaneous
  Country: US (occurrence: None)
  Receive Date: 20241021
  Receipt Date: 20241021
  Transmission Date: 20250114
  Serious: No
  Sender: Public
  Company Number: None

PATIENT
  Age: 46 Year
  Sex: Female
  Weight: 86.18 kg

DRUGS (1)
  1. ORENCIA [Suspect]
     Active Substance: ABATACEPT
     Indication: Psoriatic arthropathy
     Dosage: FREQUENCY : WEEKLY;?
     Route: 058
     Dates: start: 202207

REACTIONS (6)
  - Arthralgia [None]
  - Behaviour disorder [None]
  - Back pain [None]
  - Myalgia [None]
  - Rash [None]
  - Pruritus [None]
